FAERS Safety Report 7003350-8 (Version None)
Quarter: 2010Q3

REPORT INFORMATION
  Report Type: 
  Country: None (occurrence: None)
  Receive Date: 20100920
  Receipt Date: 20100830
  Transmission Date: 20110219
  Serious: No
  Sender: FDA-Public Use
  Company Number: US-PFIZER INC-2010109212

PATIENT
  Sex: Female
  Weight: 91 kg

DRUGS (10)
  1. AROMASIN [Suspect]
     Indication: BREAST CANCER FEMALE
     Dosage: 25 MG, DAILY
     Route: 048
     Dates: start: 20100401
  2. ATENOLOL [Concomitant]
     Indication: HYPERTENSION
     Dosage: UNK
  3. TYLENOL [Concomitant]
     Indication: ARTHRITIS
     Dosage: UNK
     Route: 048
  4. VITAMIN D [Concomitant]
     Indication: BONE DISORDER
     Dosage: 1000 MG, 2X/DAY
  5. CALCIUM WITH VITAMIN D [Concomitant]
     Indication: BONE DISORDER
     Dosage: UNK
  6. LIPITOR [Concomitant]
     Indication: HYPERTENSION
     Dosage: 10 MG, 1X/DAY
     Route: 048
  7. TOBRADEX [Concomitant]
     Indication: EYE DISORDER
     Dosage: UNK
     Route: 047
  8. AZOPT [Concomitant]
     Indication: EYE DISORDER
     Dosage: UNK
     Route: 047
  9. ACETYLSALICYLIC ACID [Concomitant]
     Dosage: 81 MG, 1X/DAY
  10. MULTIVITAMINS AND IRON [Concomitant]
     Dosage: UNK

REACTIONS (2)
  - ASTHENIA [None]
  - FATIGUE [None]
